FAERS Safety Report 23741548 (Version 2)
Quarter: 2024Q2

REPORT INFORMATION
  Report Type: Spontaneous
  Country: US (occurrence: US)
  Receive Date: 20240415
  Receipt Date: 20240429
  Transmission Date: 20240716
  Serious: Yes (Death, Hospitalization)
  Sender: FDA-Public Use
  Company Number: US-MYLANLABS-2024M1030848

PATIENT
  Sex: Male
  Weight: 62.9 kg

DRUGS (7)
  1. NOREPINEPHRINE BITARTRATE [Suspect]
     Active Substance: NOREPINEPHRINE BITARTRATE
     Indication: Septic shock
     Dosage: UNK
     Route: 042
     Dates: start: 20230618
  2. DOXYCYCLINE [Concomitant]
     Active Substance: DOXYCYCLINE
     Dosage: 100 MILLIGRAM, BID (100 MG IN 250ML NS IVPB EVERY 12 HOURS)
     Route: 042
  3. ALBUTEROL\IPRATROPIUM [Concomitant]
     Active Substance: ALBUTEROL\IPRATROPIUM
     Dosage: UNK UNK, Q4H (EVERY 4 HOURS)
     Route: 065
  4. MEROPENEM [Concomitant]
     Active Substance: MEROPENEM
     Dosage: UNK, QID (EVERY 6 HOURS)
     Route: 042
  5. METHYLPREDNISOLONE [Concomitant]
     Active Substance: METHYLPREDNISOLONE
     Dosage: UNK, BID (EVERY 12 HOURS)
     Route: 065
  6. FENTANYL [Concomitant]
     Active Substance: FENTANYL\FENTANYL CITRATE
     Dosage: 50 MICROGRAM, QH
     Route: 065
  7. VASOPRESSIN [Concomitant]
     Active Substance: VASOPRESSIN
     Dosage: 0.04 UNITS PER MINUTE
     Route: 065

REACTIONS (5)
  - Death [Fatal]
  - Mean arterial pressure decreased [Unknown]
  - Product substitution issue [Unknown]
  - Product compounding quality issue [Unknown]
  - Off label use [Unknown]
